FAERS Safety Report 25383840 (Version 1)
Quarter: 2025Q2

REPORT INFORMATION
  Report Type: Report from Study
  Country: EG (occurrence: EG)
  Receive Date: 20250602
  Receipt Date: 20250602
  Transmission Date: 20250716
  Serious: Yes (Hospitalization, Other)
  Sender: ABBVIE
  Company Number: EG-ABBVIE-6304405

PATIENT
  Age: 22 Year
  Sex: Male

DRUGS (1)
  1. HUMIRA [Suspect]
     Active Substance: ADALIMUMAB
     Indication: Ankylosing spondylitis
     Dosage: AN INJECTION, FORM STRENGTH: 40 MG ,START DATE TEXT: APRIL OR JUNE2024, ONGOING
     Route: 058
     Dates: start: 2024

REACTIONS (3)
  - Hip arthroplasty [Recovered/Resolved with Sequelae]
  - Arthropathy [Unknown]
  - Off label use [Unknown]

NARRATIVE: CASE EVENT DATE: 20250301
